FAERS Safety Report 6707007-X (Version None)
Quarter: 2010Q2

REPORT INFORMATION
  Report Type: 
  Country: None (occurrence: None)
  Receive Date: 20100430
  Receipt Date: 20100430
  Transmission Date: 20101027
  Serious: Yes (Hospitalization, Other)
  Sender: FDA-Public Use
  Company Number: None

PATIENT
  Age: 61 Year
  Sex: Female
  Weight: 58.9676 kg

DRUGS (1)
  1. SULFASALAZINE [Suspect]
     Indication: ARTHRITIS
     Dosage: 500MG 3X1 PO
     Route: 048
     Dates: start: 20090330, end: 20090415

REACTIONS (7)
  - AMNESIA [None]
  - DRUG HYPERSENSITIVITY [None]
  - DYSPHAGIA [None]
  - FATIGUE [None]
  - NO THERAPEUTIC RESPONSE [None]
  - ORAL FUNGAL INFECTION [None]
  - STEVENS-JOHNSON SYNDROME [None]
